FAERS Safety Report 16595434 (Version 1)
Quarter: 2019Q3

REPORT INFORMATION
  Report Type: Spontaneous
  Country: US (occurrence: US)
  Receive Date: 20190719
  Receipt Date: 20190719
  Transmission Date: 20191004
  Serious: No
  Sender: FDA-Public Use
  Company Number: US-SHIRE-US201923148

PATIENT
  Age: 12 Year
  Sex: Male

DRUGS (1)
  1. VYVANSE [Suspect]
     Active Substance: LISDEXAMFETAMINE DIMESYLATE
     Indication: ATTENTION DEFICIT/HYPERACTIVITY DISORDER
     Dosage: 15 MILLIGRAM, 1X/DAY:QD
     Route: 065

REACTIONS (5)
  - Temporomandibular joint syndrome [Unknown]
  - Impulsive behaviour [Unknown]
  - Growth accelerated [Unknown]
  - Drug ineffective [Unknown]
  - Wrong technique in product usage process [Unknown]
